FAERS Safety Report 25455302 (Version 1)
Quarter: 2025Q2

REPORT INFORMATION
  Report Type: Spontaneous
  Country: US (occurrence: US)
  Receive Date: 20250619
  Receipt Date: 20250619
  Transmission Date: 20250717
  Serious: Yes (Other)
  Sender: TEVA
  Company Number: US-TEVA-VS-3334852

PATIENT
  Age: 26 Year
  Sex: Female

DRUGS (1)
  1. AUSTEDO [Suspect]
     Active Substance: DEUTETRABENAZINE
     Indication: Tardive dyskinesia
     Route: 048
     Dates: start: 2025

REACTIONS (9)
  - Tardive dyskinesia [Unknown]
  - Drug ineffective [Unknown]
  - Electric shock sensation [Unknown]
  - Hypoaesthesia [Unknown]
  - Hypersomnia [Unknown]
  - Muscle tightness [Unknown]
  - Respiration abnormal [Unknown]
  - Nausea [Unknown]
  - Diarrhoea [Unknown]

NARRATIVE: CASE EVENT DATE: 20250101
